FAERS Safety Report 12607846 (Version 1)
Quarter: 2016Q3

REPORT INFORMATION
  Report Type: Report from Study
  Country: FR (occurrence: FR)
  Receive Date: 20160729
  Receipt Date: 20160729
  Transmission Date: 20161109
  Serious: Yes (Death, Life-Threatening, Hospitalization, Other)
  Sender: FDA-Public Use
  Company Number: FR-BRISTOL-MYERS SQUIBB COMPANY-BMS-2016-061568

PATIENT
  Age: 38 Year
  Sex: Male
  Weight: 92 kg

DRUGS (5)
  1. CORTANCYL [Concomitant]
     Active Substance: PREDNISONE
     Indication: TRANSPLANT REJECTION
     Dosage: 5 MG, QD
     Route: 065
     Dates: start: 20140909
  2. MYFORTIC [Concomitant]
     Active Substance: MYCOPHENOLATE SODIUM
     Indication: TRANSPLANT REJECTION
     Dosage: 360 MG, BID
     Route: 065
     Dates: start: 20140914
  3. ENTECAVIR. [Suspect]
     Active Substance: ENTECAVIR
     Indication: HEPATITIS B
     Dosage: 1 MG, QD
     Route: 065
     Dates: start: 20081212
  4. AMLOR [Concomitant]
     Active Substance: AMLODIPINE BESYLATE
     Indication: HYPERTENSION
     Dosage: 10 MG, QD
     Route: 065
     Dates: start: 201409
  5. ADVAGRAF [Concomitant]
     Active Substance: TACROLIMUS
     Indication: TRANSPLANT REJECTION
     Dosage: 7 MG, QD
     Route: 065
     Dates: start: 20160208

REACTIONS (7)
  - Chemical peritonitis [Recovered/Resolved]
  - Metabolic acidosis [Fatal]
  - Cardio-respiratory arrest [Fatal]
  - Liver transplant [Recovered/Resolved]
  - Hepatocellular carcinoma [Unknown]
  - Multiple organ dysfunction syndrome [Fatal]
  - Surgery [Unknown]

NARRATIVE: CASE EVENT DATE: 201409
